FAERS Safety Report 9838113 (Version 1)
Quarter: 2013Q4

REPORT INFORMATION
  Report Type: Spontaneous
  Country: US (occurrence: None)
  Receive Date: 20131205
  Receipt Date: 20131205
  Transmission Date: 20140711
  Serious: Yes (Other)
  Sender: FDA-Public Use
  Company Number: 163-POMAL-13104257

PATIENT
  Age: 74 Year
  Sex: Male
  Weight: 170 kg

DRUGS (13)
  1. POMALYST [Suspect]
     Indication: PLASMA CELL MYELOMA
     Dosage: 4 MG, 21 IN 21 D, PO
     Route: 048
     Dates: start: 20131008, end: 20131015
  2. DEXAMETHASONE (DEXAMETHASONE) [Concomitant]
  3. TROSPIUM (TROSPIUM) [Concomitant]
  4. TRAMADOL (TRAMADOL) [Concomitant]
  5. FINASTERIDE (FINASTERIDE) [Concomitant]
  6. PANTOPRAZOLE (PANTOPRAZOLE) [Concomitant]
  7. AMLODIPINE (AMLODIPINE) [Concomitant]
  8. LISINOPRIL (LISINOPRIL) [Concomitant]
  9. METFORMIN (METFORMIN) [Concomitant]
  10. ASPIRIN (ACETYLSALICYLIC ACID) [Concomitant]
  11. ACYCLOVIR (ACICLOVIR) (ACICLOVIR) [Concomitant]
  12. TERAZOSIN (TERAZOSIN) (TERAZOSIN) [Concomitant]
  13. ZOLPIDEM (ZOLPIDEM) [Concomitant]

REACTIONS (3)
  - White blood cell count decreased [None]
  - Haemoglobin decreased [None]
  - Red blood cell count decreased [None]
